FAERS Safety Report 19455353 (Version 5)
Quarter: 2022Q3

REPORT INFORMATION
  Report Type: Report from Study
  Country: CO (occurrence: CO)
  Receive Date: 20210623
  Receipt Date: 20220808
  Transmission Date: 20221027
  Serious: Yes (Other)
  Sender: FDA-Public Use
  Company Number: NVSC2021CO113563

PATIENT
  Sex: Female
  Weight: 58 kg

DRUGS (6)
  1. COSENTYX [Suspect]
     Active Substance: SECUKINUMAB
     Indication: Psoriatic arthropathy
     Dosage: 300 MG, QMO
     Route: 058
     Dates: start: 2016
  2. COSENTYX [Suspect]
     Active Substance: SECUKINUMAB
     Dosage: 300 MG, QMO
     Route: 058
  3. COSENTYX [Suspect]
     Active Substance: SECUKINUMAB
     Dosage: UNK
     Route: 065
     Dates: start: 20220515
  4. METHOTREXATE [Suspect]
     Active Substance: METHOTREXATE
     Indication: Product used for unknown indication
     Dosage: UNK
     Route: 065
  5. LANTUS [Concomitant]
     Active Substance: INSULIN GLARGINE
     Indication: Diabetes mellitus
     Dosage: 30 UNIT, Q12H
     Route: 058
     Dates: start: 2014
  6. LEVOTHYROXINE [Concomitant]
     Active Substance: LEVOTHYROXINE
     Indication: Thyroid disorder
     Dosage: 125 MG, QD
     Route: 048
     Dates: start: 2015

REACTIONS (16)
  - Paralysis [Unknown]
  - Psoriatic arthropathy [Unknown]
  - Internal haemorrhage [Unknown]
  - Suicidal behaviour [Unknown]
  - Pain [Unknown]
  - Trigger finger [Unknown]
  - Dandruff [Unknown]
  - Disease recurrence [Unknown]
  - Drooling [Unknown]
  - Pain in extremity [Unknown]
  - Muscle rigidity [Unknown]
  - Psoriasis [Recovered/Resolved]
  - Scratch [Unknown]
  - Condition aggravated [Unknown]
  - Tongue ulceration [Unknown]
  - Drug intolerance [Unknown]
